FAERS Safety Report 21780636 (Version 3)
Quarter: 2023Q1

REPORT INFORMATION
  Report Type: Spontaneous
  Country: GB (occurrence: GB)
  Receive Date: 20221227
  Receipt Date: 20230318
  Transmission Date: 20230417
  Serious: Yes (Death, Hospitalization, Other)
  Sender: FDA-Public Use
  Company Number: GB-ROCHE-3235339

PATIENT
  Age: 67 Year
  Sex: Female

DRUGS (42)
  1. TAMOXIFEN [Suspect]
     Active Substance: TAMOXIFEN
     Indication: Breast cancer metastatic
     Dosage: 600 MILLIGRAM (EVERY 1 WEEK)
     Route: 048
  2. TAMOXIFEN [Suspect]
     Active Substance: TAMOXIFEN
     Indication: HER2 positive breast cancer
     Dosage: 600 MILLIGRAM (1 EVERY 3 WEEK )20 MG, QD TIME INTERVAL BETWEEN BEGINNING OF DRUG)
     Route: 048
     Dates: start: 20160712, end: 20160802
  3. TAMOXIFEN [Suspect]
     Active Substance: TAMOXIFEN
     Dosage: 20 MILLIGRAM, ONCE A DAY
     Route: 048
     Dates: start: 20160712, end: 20160802
  4. TAMOXIFEN [Suspect]
     Active Substance: TAMOXIFEN
     Dosage: 20 MILLIGRAM, ONCE A DAY
     Route: 048
     Dates: start: 20160712, end: 20160802
  5. TAMOXIFEN [Suspect]
     Active Substance: TAMOXIFEN
     Dosage: 440 MILLIGRAM
     Route: 065
  6. TAMOXIFEN [Suspect]
     Active Substance: TAMOXIFEN
     Indication: Product used for unknown indication
     Dosage: 600 MILLIGRAM, EVERY WEEK
     Route: 048
  7. TAMOXIFEN [Suspect]
     Active Substance: TAMOXIFEN
     Dosage: 600 MILLIGRAM
     Route: 065
  8. TAMOXIFEN [Suspect]
     Active Substance: TAMOXIFEN
     Dosage: 600 MILLIGRAM (20 MG, QD TIME INTERVAL BETWEEN BEGINNING OF DRUG)
     Route: 065
     Dates: start: 20160712, end: 20160802
  9. ADALIMUMAB [Suspect]
     Active Substance: ADALIMUMAB
     Indication: Product used for unknown indication
     Dosage: 40 MILLIGRAM (EVERY 2 WEEK) (40 MG, Q2W)
     Route: 058
     Dates: start: 20151124
  10. ADALIMUMAB [Suspect]
     Active Substance: ADALIMUMAB
     Dosage: 80 MILLIGRAM (WEEK TWO)
     Route: 058
  11. ADALIMUMAB [Suspect]
     Active Substance: ADALIMUMAB
     Dosage: 160 MILLIGRAM(WEEK ZERO)
     Route: 058
     Dates: start: 20210401
  12. CAPECITABINE [Suspect]
     Active Substance: CAPECITABINE
     Indication: Product used for unknown indication
     Dosage: 1000 MILLIGRAM
     Route: 048
  13. CAPECITABINE [Suspect]
     Active Substance: CAPECITABINE
     Indication: Breast cancer metastatic
     Dosage: 1000 MILLIGRAM
     Route: 048
  14. CAPECITABINE [Suspect]
     Active Substance: CAPECITABINE
     Indication: HER2 positive breast cancer
     Dosage: 1500 MILLIGRAM (TIME INTERVAL BETWEEN BEGINNING OF DRUG ADMINISTRATION AND END OF REACTION/EV)
     Route: 048
     Dates: start: 20161122, end: 20161213
  15. CAPECITABINE [Suspect]
     Active Substance: CAPECITABINE
     Dosage: 1000 MILLIGRAM (1500 MG, 1300 MG FROM 13-DEC-2016 TO 16-DEC-2016)
     Route: 048
     Dates: start: 20161122, end: 20161213
  16. CAPECITABINE [Suspect]
     Active Substance: CAPECITABINE
     Dosage: 1300 MILLIGRAM, TWO TIMES A DAY (TIME INTERVAL BETWEEN BEGINNING OF DRUG ADMINISTRATION AND END OF R
     Route: 048
     Dates: start: 20161213, end: 20161216
  17. CAPECITABINE [Suspect]
     Active Substance: CAPECITABINE
     Dosage: 1000 MILLIGRAM
     Route: 048
     Dates: start: 20161213, end: 20161216
  18. EXEMESTANE [Suspect]
     Active Substance: EXEMESTANE
     Indication: Breast cancer metastatic
     Dosage: UNK
     Route: 048
     Dates: end: 20160712
  19. EXEMESTANE [Suspect]
     Active Substance: EXEMESTANE
     Indication: HER2 positive breast cancer
     Dosage: 25 MILLIGRAM, ONCE A DAY
     Route: 048
     Dates: start: 20160531, end: 20160610
  20. EXEMESTANE [Suspect]
     Active Substance: EXEMESTANE
     Dosage: ONCE A DAY (LAST DOSE ON 12/JUL/2016)
     Route: 065
     Dates: start: 20160712
  21. HYALURONIDASE [Suspect]
     Active Substance: HYALURONIDASE
     Indication: Breast cancer metastatic
     Dosage: 600 MILLIGRAM (EVERY 3 WEEK)
     Route: 058
     Dates: start: 20151124, end: 20151221
  22. HYALURONIDASE [Suspect]
     Active Substance: HYALURONIDASE
     Indication: HER2 positive breast cancer
     Dosage: 600 MILLIGRAM (EVERY 3 WEEK)
     Route: 058
     Dates: start: 20160531
  23. PACLITAXEL [Suspect]
     Active Substance: PACLITAXEL
     Indication: Breast cancer metastatic
     Dosage: 141 MILLIGRAM
     Route: 042
     Dates: start: 20151124
  24. PACLITAXEL [Suspect]
     Active Substance: PACLITAXEL
     Dosage: 141 MILLIGRAM
     Route: 042
     Dates: start: 20161122
  25. PACLITAXEL [Suspect]
     Active Substance: PACLITAXEL
     Dosage: UNK
     Route: 065
     Dates: start: 20161124
  26. PACLITAXEL [Suspect]
     Active Substance: PACLITAXEL
     Indication: Product used for unknown indication
     Dosage: 141 MILLIGRAM (141 MILLIGRAM, QMO)
     Route: 042
     Dates: start: 20151124, end: 20151221
  27. HYALURONIDASE (HUMAN RECOMBINANT) [Suspect]
     Active Substance: HYALURONIDASE (HUMAN RECOMBINANT)
     Indication: HER2 positive breast cancer
     Dosage: 600 MILLIGRAM (600 MG, EVERY 3 WEEKS)
     Route: 058
     Dates: start: 20151124, end: 20151221
  28. HYALURONIDASE (HUMAN RECOMBINANT) [Suspect]
     Active Substance: HYALURONIDASE (HUMAN RECOMBINANT)
     Dosage: EVERY 3 WEEK
     Route: 058
     Dates: start: 20160531
  29. HYALURONIDASE (HUMAN RECOMBINANT) [Suspect]
     Active Substance: HYALURONIDASE (HUMAN RECOMBINANT)
     Dosage: EVERY 3 WEEK
     Route: 058
     Dates: start: 20160531
  30. TRASTUZUMAB [Suspect]
     Active Substance: TRASTUZUMAB
     Indication: Breast cancer metastatic
     Dosage: 600 MILLIGRAM
     Route: 058
     Dates: start: 20151124, end: 20151221
  31. TRASTUZUMAB [Suspect]
     Active Substance: TRASTUZUMAB
     Indication: HER2 positive breast cancer
     Dosage: 600 MILLIGRAM EVERY 3 WEEKS (600 MILLIGRAM, PER 3 WEEKS)
     Route: 058
     Dates: start: 20160531, end: 20161115
  32. TRASTUZUMAB [Suspect]
     Active Substance: TRASTUZUMAB
     Dosage: 600 MILLIGRAM
     Route: 058
     Dates: start: 20160531, end: 20161115
  33. HYALURONIDASE (HUMAN RECOMBINANT) [Suspect]
     Active Substance: HYALURONIDASE (HUMAN RECOMBINANT)
     Indication: HER2 positive breast cancer
     Dosage: 600 MILLIGRAM (1 EVERY 3 WEEKS)
     Route: 058
     Dates: start: 20151124
  34. HYALURONIDASE (HUMAN RECOMBINANT) [Suspect]
     Active Substance: HYALURONIDASE (HUMAN RECOMBINANT)
     Indication: Breast cancer metastatic
     Dosage: 600 MILLIGRAM (1 EVERY 3 WEEKS)
     Route: 058
     Dates: start: 20160531
  35. HYALURONIDASE (HUMAN RECOMBINANT) [Suspect]
     Active Substance: HYALURONIDASE (HUMAN RECOMBINANT)
     Dosage: 600 MILLIGRAM (1 EVERY 3 WEEKS)
     Route: 058
     Dates: start: 20160531
  36. CALCIUM CARBONATE\CHOLECALCIFEROL [Concomitant]
     Active Substance: CALCIUM CARBONATE\CHOLECALCIFEROL
     Indication: Product used for unknown indication
     Dosage: 1 DOSAGE FORM, ONCE A DAY
     Route: 048
     Dates: start: 20101221
  37. CALCIUM CARBONATE\CHOLECALCIFEROL [Concomitant]
     Active Substance: CALCIUM CARBONATE\CHOLECALCIFEROL
     Dosage: 1.5 GRAM, ONCE A DAY
     Route: 048
     Dates: start: 20101221
  38. CHOLECALCIFEROL [Concomitant]
     Active Substance: CHOLECALCIFEROL
     Indication: Product used for unknown indication
     Dosage: 1.5 GRAM, ONCE A DAY
     Route: 048
     Dates: start: 20101221
  39. ENOXAPARIN [Concomitant]
     Active Substance: ENOXAPARIN
     Indication: Thrombosis prophylaxis
     Dosage: 20 MILLIGRAM, ONCE A DAY
     Route: 058
     Dates: start: 20160106
  40. ENOXAPARIN [Concomitant]
     Active Substance: ENOXAPARIN
     Indication: Embolism venous
     Dosage: 20 MILLIGRAM, ONCE A DAY ((PREVENTION OF VENOUS THROMBOEMBOLISM)
     Route: 058
     Dates: start: 20160104, end: 20160106
  41. OMEPRAZOLE [Concomitant]
     Active Substance: OMEPRAZOLE
     Indication: Product used for unknown indication
     Dosage: 20 MILLIGRAM, ONCE A DAY
     Route: 048
  42. OMEPRAZOLE [Concomitant]
     Active Substance: OMEPRAZOLE
     Dosage: 1 DOSAGE FORM, ONCE A DAY
     Route: 048

REACTIONS (54)
  - Death [Fatal]
  - Balance disorder [Fatal]
  - Pyrexia [Fatal]
  - Dyspnoea [Fatal]
  - Asthenia [Fatal]
  - Blood bilirubin increased [Fatal]
  - Pain [Fatal]
  - Vomiting [Fatal]
  - Blood creatinine increased [Fatal]
  - C-reactive protein increased [Fatal]
  - Sinusitis [Fatal]
  - Ascites [Fatal]
  - Sensory loss [Fatal]
  - Headache [Fatal]
  - Constipation [Fatal]
  - Protein total decreased [Fatal]
  - Aspartate aminotransferase increased [Fatal]
  - Fatigue [Fatal]
  - Blood glucose increased [Fatal]
  - Blood urea increased [Fatal]
  - Abdominal pain upper [Fatal]
  - Depressed mood [Fatal]
  - Urinary tract infection [Fatal]
  - Hypernatraemia [Fatal]
  - Hypokalaemia [Fatal]
  - Musculoskeletal stiffness [Fatal]
  - Injection site pain [Fatal]
  - Nausea [Fatal]
  - Ill-defined disorder [Fatal]
  - Haemoglobin decreased [Fatal]
  - Neutrophil count increased [Fatal]
  - Hypertension [Fatal]
  - Blood alkaline phosphatase increased [Fatal]
  - Product administered at inappropriate site [Fatal]
  - Agitation [Fatal]
  - Alanine aminotransferase increased [Fatal]
  - Diarrhoea [Fatal]
  - Crohn^s disease [Fatal]
  - Blood phosphorus increased [Fatal]
  - Irritability [Fatal]
  - Muscle twitching [Fatal]
  - Crying [Fatal]
  - Tremor [Fatal]
  - Sensory disturbance [Fatal]
  - Insomnia [Fatal]
  - Rectal haemorrhage [Fatal]
  - White blood cell count increased [Fatal]
  - Lymphopenia [Fatal]
  - Malaise [Fatal]
  - Neck pain [Fatal]
  - Back pain [Fatal]
  - Colitis ulcerative [Fatal]
  - Cerebral haemorrhage [Fatal]
  - Hypoalbuminaemia [Fatal]

NARRATIVE: CASE EVENT DATE: 20151110
